FAERS Safety Report 17692536 (Version 1)
Quarter: 2020Q2

REPORT INFORMATION
  Report Type: Spontaneous
  Country: US (occurrence: US)
  Receive Date: 20200421
  Receipt Date: 20200421
  Transmission Date: 20200714
  Serious: No
  Sender: FDA-Public Use
  Company Number: None

PATIENT
  Age: 67 Year
  Sex: Female
  Weight: 67.91 kg

DRUGS (4)
  1. AKYNZEO [Suspect]
     Active Substance: NETUPITANT\PALONOSETRON HYDROCHLORIDE
     Indication: COLON CANCER
     Dates: start: 20200325, end: 20200421
  2. OXYCODONE 10MG [Concomitant]
     Active Substance: OXYCODONE
  3. PROCHLORPERAZINE 10MG [Concomitant]
  4. OLANZAPINE 5MG [Concomitant]
     Active Substance: OLANZAPINE

REACTIONS (3)
  - Vomiting [None]
  - Nausea [None]
  - Headache [None]

NARRATIVE: CASE EVENT DATE: 20200421
